FAERS Safety Report 19031128 (Version 3)
Quarter: 2021Q4

REPORT INFORMATION
  Report Type: Report from Study
  Country: DE (occurrence: DE)
  Receive Date: 20210319
  Receipt Date: 20211206
  Transmission Date: 20220303
  Serious: Yes (Hospitalization, Other)
  Sender: FDA-Public Use
  Company Number: NVSC2021DE060473

PATIENT
  Sex: Male
  Weight: 85 kg

DRUGS (7)
  1. COSENTYX [Suspect]
     Active Substance: SECUKINUMAB
     Indication: Psoriasis
     Dosage: 300 MG, UNKNOWN
     Route: 058
     Dates: start: 20190122
  2. COSENTYX [Suspect]
     Active Substance: SECUKINUMAB
     Dosage: UNK, Q4W
     Route: 065
     Dates: start: 20190129
  3. RAMIPRIL [Concomitant]
     Active Substance: RAMIPRIL
     Indication: Product used for unknown indication
     Dosage: 5 MG, QD
     Route: 048
  4. AMLODIPINE BESYLATE [Concomitant]
     Active Substance: AMLODIPINE BESYLATE
     Indication: Product used for unknown indication
     Dosage: 5 MG, QD
     Route: 048
  5. L DOPA [Concomitant]
     Active Substance: LEVODOPA
     Indication: Product used for unknown indication
     Dosage: 1.5 DF, QD
     Route: 048
  6. ASPIRIN [Concomitant]
     Active Substance: ASPIRIN
     Indication: Product used for unknown indication
     Dosage: 100 MG, QD
     Route: 048
  7. PANTOPRAZOLE SODIUM [Concomitant]
     Active Substance: PANTOPRAZOLE SODIUM
     Indication: Product used for unknown indication
     Dosage: UNK UNK, QD
     Route: 065

REACTIONS (17)
  - Transient ischaemic attack [Recovered/Resolved]
  - Vertigo [Recovered/Resolved]
  - Nausea [Recovered/Resolved]
  - Dysarthria [Recovered/Resolved]
  - Vomiting [Unknown]
  - Syncope [Unknown]
  - Polyneuropathy [Unknown]
  - Cerebral atrophy [Recovered/Resolved]
  - Hypertension [Recovered/Resolved]
  - Hypertensive crisis [Recovered/Resolved]
  - Gait disturbance [Unknown]
  - Blood glucose increased [Unknown]
  - Gamma-glutamyltransferase increased [Unknown]
  - C-reactive protein increased [Unknown]
  - Glycosylated haemoglobin decreased [Unknown]
  - Prothrombin time prolonged [Unknown]
  - Microangiopathy [Recovered/Resolved]

NARRATIVE: CASE EVENT DATE: 20200924
